FAERS Safety Report 9148990 (Version 1)
Quarter: 2013Q1

REPORT INFORMATION
  Report Type: Spontaneous
  Country: US (occurrence: US)
  Receive Date: 20130308
  Receipt Date: 20130308
  Transmission Date: 20140127
  Serious: No
  Sender: FDA-Public Use
  Company Number: US-ENDO PHARMACEUTICALS INC.-OPCR20121633

PATIENT
  Sex: Female

DRUGS (2)
  1. OPANA ER [Suspect]
     Indication: PRODUCT USED FOR UNKNOWN INDICATION
  2. OPANA ER [Suspect]

REACTIONS (3)
  - Formication [Not Recovered/Not Resolved]
  - Drug administration error [Unknown]
  - Drug ineffective [Not Recovered/Not Resolved]
